FAERS Safety Report 15540062 (Version 2)
Quarter: 2018Q4

REPORT INFORMATION
  Report Type: Spontaneous
  Country: DE (occurrence: DE)
  Receive Date: 20181023
  Receipt Date: 20181106
  Transmission Date: 20190205
  Serious: Yes (Other)
  Sender: FDA-Public Use
  Company Number: DE-ASTRAZENECA-2018SF37480

PATIENT
  Age: 24332 Day
  Sex: Female
  Weight: 81 kg

DRUGS (1)
  1. FASENRA [Suspect]
     Active Substance: BENRALIZUMAB
     Indication: ASTHMA
     Dosage: 30.0MG UNKNOWN
     Route: 058
     Dates: start: 20180625

REACTIONS (2)
  - Drug effect decreased [Unknown]
  - Breast cancer female [Unknown]

NARRATIVE: CASE EVENT DATE: 20181017
